FAERS Safety Report 12222899 (Version 1)
Quarter: 2016Q1

REPORT INFORMATION
  Report Type: Spontaneous
  Country: US (occurrence: US)
  Receive Date: 20160330
  Receipt Date: 20160330
  Transmission Date: 20160526
  Serious: No
  Sender: FDA-Public Use
  Company Number: US-PERRIGO-15US004908

PATIENT
  Age: 43 Year
  Sex: Female
  Weight: 74.83 kg

DRUGS (4)
  1. ACETAMINOPHEN. [Suspect]
     Active Substance: ACETAMINOPHEN
     Indication: ARTHRITIS
     Dosage: 1300 MG, QD, PRN
     Route: 048
     Dates: start: 2015, end: 201503
  2. POTASSIUM [Concomitant]
     Active Substance: POTASSIUM
     Indication: HYPOKALAEMIA
     Dosage: UNK
     Route: 048
     Dates: start: 201502
  3. CHLORTHALIDONE. [Concomitant]
     Active Substance: CHLORTHALIDONE
     Indication: HYPERTENSION
     Dosage: UNK
     Route: 048
     Dates: start: 201502
  4. ACETAMINOPHEN. [Suspect]
     Active Substance: ACETAMINOPHEN
     Dosage: 1300 MG, QD, PRN
     Route: 048
     Dates: start: 201503, end: 201504

REACTIONS (3)
  - White blood cell count increased [Recovered/Resolved]
  - Pharyngitis [Recovered/Resolved]
  - Exposure to unspecified agent [Recovered/Resolved]

NARRATIVE: CASE EVENT DATE: 201503
